FAERS Safety Report 24558195 (Version 2)
Quarter: 2024Q4

REPORT INFORMATION
  Report Type: Report from Study
  Country: DE (occurrence: DE)
  Receive Date: 20241028
  Receipt Date: 20241106
  Transmission Date: 20250115
  Serious: Yes (Death, Hospitalization, Other)
  Sender: ABBVIE
  Company Number: DE-ABBVIE-5980389

PATIENT
  Age: 77 Year
  Sex: Female

DRUGS (2)
  1. CARBIDOPA\LEVODOPA [Suspect]
     Active Substance: CARBIDOPA\LEVODOPA
     Indication: Parkinson^s disease
     Dosage: MD 4.8 ML; CRD 4.5 ML/H; ED 1.2 ML
     Route: 050
     Dates: start: 20230614
  2. CARBIDOPA\LEVODOPA [Suspect]
     Active Substance: CARBIDOPA\LEVODOPA

REACTIONS (3)
  - Multiple organ dysfunction syndrome [Fatal]
  - Seizure [Not Recovered/Not Resolved]
  - Illness [Unknown]
